FAERS Safety Report 14659467 (Version 1)
Quarter: 2018Q1

REPORT INFORMATION
  Report Type: Spontaneous
  Country: CA (occurrence: CA)
  Receive Date: 20180320
  Receipt Date: 20180320
  Transmission Date: 20180509
  Serious: Yes (Hospitalization)
  Sender: FDA-Public Use
  Company Number: CA-JNJFOC-20180314853

PATIENT
  Age: 76 Year
  Sex: Female
  Weight: 53 kg

DRUGS (19)
  1. STELARA [Suspect]
     Active Substance: USTEKINUMAB
     Indication: CROHN^S DISEASE
     Route: 058
  2. ALENDRONATE [Concomitant]
     Active Substance: ALENDRONATE SODIUM
     Route: 065
  3. STELARA [Suspect]
     Active Substance: USTEKINUMAB
     Indication: CROHN^S DISEASE
     Route: 058
  4. DEXILANT [Concomitant]
     Active Substance: DEXLANSOPRAZOLE
     Route: 065
  5. SYNTHROID [Concomitant]
     Active Substance: LEVOTHYROXINE SODIUM
     Route: 065
  6. FOLIC ACID. [Concomitant]
     Active Substance: FOLIC ACID
     Route: 065
  7. TOLTERODINE [Concomitant]
     Active Substance: TOLTERODINE
     Route: 065
  8. LETROZOLE. [Concomitant]
     Active Substance: LETROZOLE
     Route: 065
  9. CALCIUM [Concomitant]
     Active Substance: CALCIUM
     Route: 065
  10. CITALOPRAM [Concomitant]
     Active Substance: CITALOPRAM HYDROBROMIDE
     Route: 065
  11. FERROUS SULFATE. [Concomitant]
     Active Substance: FERROUS SULFATE
     Route: 065
  12. STELARA [Suspect]
     Active Substance: USTEKINUMAB
     Indication: CROHN^S DISEASE
     Dosage: IV DOSE
     Route: 058
  13. FLOVENT [Concomitant]
     Active Substance: FLUTICASONE PROPIONATE
     Route: 065
  14. PREGABALIN. [Concomitant]
     Active Substance: PREGABALIN
     Route: 065
  15. VITAMIN B12 [Concomitant]
     Active Substance: CYANOCOBALAMIN
     Route: 065
  16. LATANOPROST. [Concomitant]
     Active Substance: LATANOPROST
     Route: 047
  17. LORAZEPAM. [Concomitant]
     Active Substance: LORAZEPAM
     Route: 065
  18. SALBUTAMOL [Concomitant]
     Active Substance: ALBUTEROL
     Route: 065
  19. VITAMIN D [Concomitant]
     Active Substance: CHOLECALCIFEROL
     Route: 065

REACTIONS (4)
  - Injection site erythema [Recovering/Resolving]
  - Incorrect dose administered [Unknown]
  - Panniculitis [Recovering/Resolving]
  - Off label use [Unknown]
